FAERS Safety Report 10051339 (Version 1)
Quarter: 2014Q2

REPORT INFORMATION
  Report Type: Spontaneous
  Country: US (occurrence: US)
  Receive Date: 20140401
  Receipt Date: 20140401
  Transmission Date: 20141212
  Serious: No
  Sender: FDA-Public Use
  Company Number: US-PFIZER INC-2014089160

PATIENT
  Sex: Male

DRUGS (1)
  1. GEMFIBROZIL [Suspect]
     Dosage: 600 MG, UNK

REACTIONS (4)
  - Head discomfort [Unknown]
  - Muscle disorder [Unknown]
  - Burning sensation [Unknown]
  - Blood pressure decreased [Unknown]
